FAERS Safety Report 16011952 (Version 1)
Quarter: 2019Q1

REPORT INFORMATION
  Report Type: Spontaneous
  Country: US (occurrence: US)
  Receive Date: 20190226
  Receipt Date: 20190226
  Transmission Date: 20190418
  Serious: No
  Sender: FDA-Public Use
  Company Number: None

PATIENT
  Sex: Female

DRUGS (1)
  1. AMLODIPINE 2.5MG [Suspect]
     Active Substance: AMLODIPINE BESYLATE

REACTIONS (1)
  - Chest discomfort [None]
